FAERS Safety Report 9408211 (Version 2)
Quarter: 2013Q3

REPORT INFORMATION
  Report Type: Spontaneous
  Country: FR (occurrence: FR)
  Receive Date: 20130718
  Receipt Date: 20130725
  Transmission Date: 20140515
  Serious: Yes (Hospitalization)
  Sender: FDA-Public Use
  Company Number: FR-PFIZER INC-2013208154

PATIENT
  Age: 46 Year
  Sex: Female

DRUGS (7)
  1. EFFEXOR LP [Suspect]
     Dosage: 37.5 MG, UNK
     Route: 048
     Dates: start: 201209
  2. EFFEXOR LP [Suspect]
     Dosage: 75 MG, 1X/DAY
     Route: 048
     Dates: start: 20130513
  3. EPITOMAX [Suspect]
     Dosage: 25 MG, 1X/DAY THE 1ST WEEK
     Route: 048
     Dates: start: 20130522
  4. EPITOMAX [Suspect]
     Dosage: 25 MG, 2X/DAY THE 2ND WEEK
     Route: 048
  5. EPITOMAX [Suspect]
     Dosage: 50 MG + 20 MG THE THIRD WEEK
     Route: 048
  6. INEXIUM [Suspect]
     Dosage: UNK
     Route: 048
     Dates: start: 201305
  7. ACUPAN [Suspect]
     Dosage: UNK
     Route: 048
     Dates: start: 201305

REACTIONS (2)
  - Depression [Not Recovered/Not Resolved]
  - Suicidal ideation [Not Recovered/Not Resolved]
